FAERS Safety Report 7410990-0 (Version None)
Quarter: 2011Q2

REPORT INFORMATION
  Report Type: 
  Country: None (occurrence: None)
  Receive Date: 20110405
  Receipt Date: 20110321
  Transmission Date: 20111010
  Serious: Yes (Other)
  Sender: FDA-Public Use
  Company Number: AUR-APL-2011-00724

PATIENT
  Age: 79 Year
  Sex: Male
  Weight: 101 kg

DRUGS (4)
  1. ACETAMINOPHEN AND CODEINE PHOSPHATE [Concomitant]
  2. LACTULOSE [Concomitant]
  3. MISOPROSTOL [Concomitant]
  4. FINASTERIDE [Suspect]
     Indication: BENIGN NEOPLASM OF PROSTATE
     Dosage: 28 DAYS IN 2011

REACTIONS (5)
  - ALANINE AMINOTRANSFERASE INCREASED [None]
  - BLOOD ALKALINE PHOSPHATASE INCREASED [None]
  - HEPATIC FUNCTION ABNORMAL [None]
  - GAMMA-GLUTAMYLTRANSFERASE INCREASED [None]
  - BLOOD BILIRUBIN INCREASED [None]
